FAERS Safety Report 16652109 (Version 1)
Quarter: 2019Q3

REPORT INFORMATION
  Report Type: Spontaneous
  Country: US (occurrence: US)
  Receive Date: 20190730
  Receipt Date: 20190730
  Transmission Date: 20191004
  Serious: Yes (Life-Threatening, Hospitalization, Disabling)
  Sender: FDA-Public Use
  Company Number: None

PATIENT
  Age: 45 Year
  Sex: Female
  Weight: 65.8 kg

DRUGS (1)
  1. DUPILUMAB [Suspect]
     Active Substance: DUPILUMAB
     Indication: ASTHMA
     Dosage: ?          OTHER FREQUENCY:EVERY OTHER WEEK;?
     Route: 041
     Dates: start: 20190513

REACTIONS (5)
  - Gastrointestinal fistula [None]
  - Respiratory failure [None]
  - Acute lung injury [None]
  - Intestinal ischaemia [None]
  - Intestinal perforation [None]

NARRATIVE: CASE EVENT DATE: 20190607
